FAERS Safety Report 12876185 (Version 1)
Quarter: 2016Q4

REPORT INFORMATION
  Report Type: Spontaneous
  Country: BR (occurrence: BR)
  Receive Date: 20161024
  Receipt Date: 20161024
  Transmission Date: 20170207
  Serious: Yes (Hospitalization)
  Sender: FDA-Public Use
  Company Number: BR-AMGEN-BRASP2016120211

PATIENT
  Age: 64 Year
  Sex: Female

DRUGS (2)
  1. ENBREL [Suspect]
     Active Substance: ETANERCEPT
     Indication: RHEUMATOID ARTHRITIS
     Dosage: 50 MG, ONCE WEEKLY
     Route: 065
     Dates: start: 2013
  2. TECNOMET [Concomitant]
     Active Substance: METHOTREXATE
     Dosage: 6 TABLETS, ONCE WEEKLY (ON SATURDAY)

REACTIONS (3)
  - Arthropathy [Recovered/Resolved]
  - Arthritis infective [Unknown]
  - Knee deformity [Recovered/Resolved]

NARRATIVE: CASE EVENT DATE: 201505
